FAERS Safety Report 12155110 (Version 1)
Quarter: 2016Q1

REPORT INFORMATION
  Report Type: Report from Study
  Country: VE (occurrence: VE)
  Receive Date: 20160307
  Receipt Date: 20160307
  Transmission Date: 20160526
  Serious: Yes (Hospitalization, Other)
  Sender: FDA-Public Use
  Company Number: VE-ABBVIE-16K-178-1575607-00

PATIENT
  Age: 60 Year
  Sex: Female

DRUGS (1)
  1. ZEMPLAR [Suspect]
     Active Substance: PARICALCITOL
     Indication: NEPHROPATHY
     Route: 042

REACTIONS (4)
  - Tuberculosis [Unknown]
  - Diarrhoea [Not Recovered/Not Resolved]
  - Pleural effusion [Recovering/Resolving]
  - Fluid imbalance [Not Recovered/Not Resolved]

NARRATIVE: CASE EVENT DATE: 20160128
